FAERS Safety Report 12265048 (Version 4)
Quarter: 2017Q4

REPORT INFORMATION
  Report Type: Spontaneous
  Country: TW (occurrence: TW)
  Receive Date: 20160413
  Receipt Date: 20171011
  Transmission Date: 20180320
  Serious: Yes (Death)
  Sender: FDA-Public Use
  Company Number: TW-KERYX BIOPHARMACEUTICALS, INC.-2016TW001894

PATIENT
  Age: 66 Year
  Sex: Male

DRUGS (3)
  1. ANTIARRHYTHMIC AGENTS [Concomitant]
     Active Substance: UNSPECIFIED INGREDIENT
     Dosage: UNK
  2. NEPHOXIL [Suspect]
     Active Substance: FERRIC CITRATE ANHYDROUS
     Indication: HYPERPHOSPHATAEMIA
     Dosage: 1500 MG, QD (3X500MG)
     Route: 048
     Dates: start: 20160124, end: 201603
  3. CALCIUM [Concomitant]
     Active Substance: CALCIUM
     Dosage: UNK TAB, UNK

REACTIONS (2)
  - Myocardial infarction [Fatal]
  - Nasopharyngitis [Unknown]

NARRATIVE: CASE EVENT DATE: 201603
